FAERS Safety Report 21817101 (Version 2)
Quarter: 2023Q1

REPORT INFORMATION
  Report Type: Spontaneous
  Country: US (occurrence: US)
  Receive Date: 20230104
  Receipt Date: 20230321
  Transmission Date: 20230417
  Serious: Yes (Life-Threatening, Hospitalization, Other)
  Sender: FDA-Public Use
  Company Number: US-PFIZER INC-PV202200134022

PATIENT
  Age: 42 Year
  Sex: Female
  Weight: 56.689 kg

DRUGS (1)
  1. DOXYCYCLINE HYCLATE [Suspect]
     Active Substance: DOXYCYCLINE HYCLATE
     Indication: Influenza like illness
     Dosage: 100 MG, 2X/DAY (100MG 1 CAPSULE EVERY 12 HOURS 1 MORNING 1 EVENING)
     Dates: start: 20190529

REACTIONS (10)
  - Neoplasm malignant [Unknown]
  - Syncope [Unknown]
  - Loss of consciousness [Unknown]
  - Vomiting [Unknown]
  - Heat exhaustion [Unknown]
  - Asthenia [Unknown]
  - Mobility decreased [Unknown]
  - Pain [Unknown]
  - Illness [Unknown]
  - Off label use [Unknown]

NARRATIVE: CASE EVENT DATE: 20190501
